FAERS Safety Report 19259249 (Version 1)
Quarter: 2021Q2

REPORT INFORMATION
  Report Type: Spontaneous
  Country: US (occurrence: US)
  Receive Date: 20210514
  Receipt Date: 20210514
  Transmission Date: 20210717
  Serious: Yes (Other)
  Sender: FDA-Public Use
  Company Number: US-JNJFOC-20210516783

PATIENT

DRUGS (1)
  1. PEPCID [Suspect]
     Active Substance: FAMOTIDINE
     Indication: PRODUCT USED FOR UNKNOWN INDICATION
     Route: 065

REACTIONS (11)
  - Lip and/or oral cavity cancer [Unknown]
  - Pharyngeal cancer [Unknown]
  - Gastric cancer [Unknown]
  - Anal cancer [Unknown]
  - Colon cancer [Unknown]
  - Rectal cancer [Unknown]
  - Pancreatic carcinoma [Unknown]
  - Gastrointestinal carcinoma [Unknown]
  - Gallbladder cancer [Unknown]
  - Oesophageal carcinoma [Unknown]
  - Hepatic cancer [Unknown]
